FAERS Safety Report 5116715-6 (Version None)
Quarter: 2006Q3

REPORT INFORMATION
  Report Type: 
  Country: None (occurrence: None)
  Receive Date: 20060928
  Receipt Date: 20060922
  Transmission Date: 20061208
  Serious: Yes (Other)
  Sender: FDA-Public Use
  Company Number: BR-ROCHE-464711

PATIENT
  Age: 36 Year
  Sex: Female
  Weight: 98 kg

DRUGS (2)
  1. RIVOTRIL [Suspect]
     Indication: PANIC DISORDER
     Route: 048
     Dates: start: 19960615
  2. DEPO-PROVERA [Suspect]
     Indication: CONTRACEPTION
     Route: 030
     Dates: end: 20060515

REACTIONS (3)
  - AMENORRHOEA [None]
  - UTERINE HAEMORRHAGE [None]
  - WEIGHT INCREASED [None]
